FAERS Safety Report 4283416-6 (Version None)
Quarter: 2004Q1

REPORT INFORMATION
  Report Type: 
  Country: None (occurrence: None)
  Receive Date: 20040129
  Receipt Date: 20040129
  Transmission Date: 20041129
  Serious: Yes (Hospitalization)
  Sender: FDA-Public Use
  Company Number: None

PATIENT
  Age: 65 Year
  Sex: Female
  Weight: 58.1 kg

DRUGS (13)
  1. CEFEPIME [Suspect]
     Indication: WOUND
     Dosage: 1 G IV QD
     Route: 042
     Dates: start: 20030529, end: 20030602
  2. NORVASC [Concomitant]
  3. CLONIDINE HCL [Concomitant]
  4. CLONIDINE [Concomitant]
  5. AGGRENOX [Concomitant]
  6. PROZAC [Concomitant]
  7. LASIX [Concomitant]
  8. LENTE/HUMALOG INSULIN [Concomitant]
  9. SYNTHROID [Concomitant]
  10. PANAFIL [Concomitant]
  11. VALPROIC ACID [Concomitant]
  12. DIOVAN [Concomitant]
  13. ZOCOR [Concomitant]

REACTIONS (1)
  - MYOCLONUS [None]
